FAERS Safety Report 13012641 (Version 1)
Quarter: 2016Q4

REPORT INFORMATION
  Report Type: Report from Study
  Country: JP (occurrence: JP)
  Receive Date: 20161209
  Receipt Date: 20161209
  Transmission Date: 20170207
  Serious: Yes (Hospitalization)
  Sender: FDA-Public Use
  Company Number: JP-VIFOR (INTERNATIONAL) INC.-VIT-2016-08527

PATIENT
  Age: 42 Year
  Sex: Female
  Weight: 38.5 kg

DRUGS (12)
  1. BIO-THREE [Concomitant]
     Active Substance: HERBALS
  2. BAYASPIRIN [Concomitant]
     Active Substance: ASPIRIN
  3. CALCIUM CARBONATE. [Concomitant]
     Active Substance: CALCIUM CARBONATE
  4. GASMOTIN [Concomitant]
     Active Substance: MOSAPRIDE CITRATE
  5. EPOETIN ALFA BS [Concomitant]
     Active Substance: ERYTHROPOIETIN
     Route: 042
  6. CADUET NO.4 [Concomitant]
  7. ANPLAG [Concomitant]
     Active Substance: SARPOGRELATE
  8. OPALMON [Concomitant]
     Active Substance: LIMAPROST
  9. ROCALTROL [Concomitant]
     Active Substance: CALCITRIOL
  10. ADALAT CC [Concomitant]
     Active Substance: NIFEDIPINE
  11. AZILVA [Concomitant]
     Active Substance: AZILSARTAN KAMEDOXOMIL
  12. VELPHORO [Suspect]
     Active Substance: FERRIC OXYHYDROXIDE
     Indication: HYPERPHOSPHATAEMIA
     Route: 048
     Dates: start: 20160723, end: 20160905

REACTIONS (2)
  - Hypoglycaemia [Unknown]
  - Diarrhoea [Recovering/Resolving]

NARRATIVE: CASE EVENT DATE: 20160902
